FAERS Safety Report 9339110 (Version 1)
Quarter: 2013Q2

REPORT INFORMATION
  Report Type: Spontaneous
  Country: US (occurrence: None)
  Receive Date: 20130603
  Receipt Date: 20130603
  Transmission Date: 20140414
  Serious: Yes (Other)
  Sender: FDA-Public Use
  Company Number: 2013PROUSA02744

PATIENT
  Age: 72 Year
  Sex: Male
  Weight: 115.6 kg

DRUGS (4)
  1. PROVENGE (SIPULEUCEL-T) SUSPENSION, 250ML [Suspect]
     Indication: PROSTATE CANCER METASTATIC
     Dosage: 250ML, SINGLE INTRAVENOUS
     Route: 042
     Dates: start: 20130325, end: 20130325
  2. LUPRON (LEUPRORELIN ACETATE) [Concomitant]
  3. ASA (ACETYLSALICYLIC ACID) [Concomitant]
  4. CALCIUM (CALCIUM) [Concomitant]

REACTIONS (2)
  - Chronic lymphocytic leukaemia [None]
  - Night sweats [None]
